FAERS Safety Report 7088388-7 (Version None)
Quarter: 2010Q4

REPORT INFORMATION
  Report Type: 
  Country: None (occurrence: None)
  Receive Date: 20101108
  Receipt Date: 20101102
  Transmission Date: 20110411
  Serious: Yes (Life-Threatening, Hospitalization)
  Sender: FDA-Public Use
  Company Number: FR-ROCHE-673001

PATIENT
  Sex: Male

DRUGS (7)
  1. ROCEPHIN [Suspect]
     Dosage: CO-INDICATION REPORTED AS EPIDERMIDIS STAPHYLOCOCCUS ENDOCARDITIS
     Route: 065
     Dates: start: 20091007, end: 20091008
  2. VANCOMYCIN HCL [Suspect]
     Dosage: ROUTE REPORTED AS IV (PERFUSION), CO-INDICATION REPORTED AS EPIDERMIDIS STAPHYLOCOCCUS ENDOCARDITIS
     Route: 042
     Dates: start: 20090910, end: 20091007
  3. CLAMOXYL [Suspect]
     Dosage: ROUTE REPORTED AS IV (PERFUSION), CO-INDICATION REPORTED AS EPIDERMIDIS STAPHYLOCOCCUS ENDOCARDITIS
     Route: 042
     Dates: start: 20090910, end: 20091007
  4. ORBENIN CAP [Suspect]
     Route: 065
     Dates: start: 20091012, end: 20091013
  5. CIFLOX [Concomitant]
     Dosage: CO-INDICATION REPORTED AS EPIDERMIDIS STAPHYLOCOCCUS ENDOCARDITIS
     Dates: start: 20091008, end: 20091011
  6. ZYVOX [Concomitant]
     Dosage: CO-INDICATION REPORTED AS EPIDERMIDIS STAPHYLOCOCCUS ENDOCARDITIS
     Dates: start: 20091007, end: 20091009
  7. GENTALLINE [Concomitant]
     Dosage: DRUG REPORTED AS GENTALINE, CO-INDICATION REPORTED AS EPIDERMIDIS STAPHYLOCOCCUS ENDOCARDITIS
     Dates: start: 20090910, end: 20090922

REACTIONS (2)
  - CONDITION AGGRAVATED [None]
  - DRUG RASH WITH EOSINOPHILIA AND SYSTEMIC SYMPTOMS [None]
